FAERS Safety Report 19349379 (Version 1)
Quarter: 2021Q2

REPORT INFORMATION
  Report Type: Spontaneous
  Country: US (occurrence: US)
  Receive Date: 20210530
  Receipt Date: 20210530
  Transmission Date: 20210717
  Serious: Yes (Other)
  Sender: FDA-Public Use
  Company Number: None

PATIENT
  Age: 23 Year
  Sex: Female
  Weight: 67.5 kg

DRUGS (2)
  1. ADVANCED PURELL [Suspect]
     Active Substance: ALCOHOL
     Indication: INFECTION PROPHYLAXIS
     Dosage: ?          OTHER FREQUENCY:A + P EA. PT X 500;?
     Route: 061
     Dates: start: 20201015, end: 20210318
  2. 3M AVAGARD INSTANT HAND ANTISEPTIC WITH MOISTURIZERS [Suspect]
     Active Substance: ALCOHOL
     Indication: INFECTION PROPHYLAXIS
     Dosage: ?          OTHER FREQUENCY:A + P EA. PT X 800;?
     Route: 061
     Dates: start: 20201016, end: 20210318

REACTIONS (5)
  - Rash [None]
  - Erythema [None]
  - Skin burning sensation [None]
  - Peripheral swelling [None]
  - Pruritus [None]

NARRATIVE: CASE EVENT DATE: 20201015
